FAERS Safety Report 15084365 (Version 2)
Quarter: 2018Q3

REPORT INFORMATION
  Report Type: Report from Study
  Country: JP (occurrence: JP)
  Receive Date: 20180628
  Receipt Date: 20180710
  Transmission Date: 20181010
  Serious: Yes (Hospitalization)
  Sender: FDA-Public Use
  Company Number: JP-MYLANLABS-2018M1046657

PATIENT
  Age: 5 Year
  Sex: Female

DRUGS (2)
  1. PIPERACILLIN/TAZOBACTAM [Suspect]
     Active Substance: PIPERACILLIN SODIUM\TAZOBACTAM SODIUM
     Indication: ACUTE FOCAL BACTERIAL NEPHRITIS
     Route: 042
  2. AMIKACIN. [Concomitant]
     Active Substance: AMIKACIN
     Indication: ACUTE FOCAL BACTERIAL NEPHRITIS
     Route: 042

REACTIONS (1)
  - Histiocytosis haematophagic [Recovered/Resolved]
